FAERS Safety Report 25982075 (Version 1)
Quarter: 2025Q4

REPORT INFORMATION
  Report Type: Report from Study
  Country: IN (occurrence: IN)
  Receive Date: 20251031
  Receipt Date: 20251031
  Transmission Date: 20260117
  Serious: Yes (Other)
  Sender: ROCHE
  Company Number: IN-ROCHE-10000422821

PATIENT
  Age: 66 Year
  Sex: Female

DRUGS (3)
  1. PHESGO [Suspect]
     Active Substance: HYALURONIDASE-ZZXF\PERTUZUMAB\TRASTUZUMAB
     Indication: HER2 positive breast cancer
     Route: 058
     Dates: start: 20250312
  2. CARBOPLATIN [Concomitant]
     Active Substance: CARBOPLATIN
  3. DOCETAXEL [Concomitant]
     Active Substance: DOCETAXEL

REACTIONS (2)
  - Off label use [Unknown]
  - Breast mass [Unknown]

NARRATIVE: CASE EVENT DATE: 20250814
